FAERS Safety Report 8116576-7 (Version None)
Quarter: 2012Q1

REPORT INFORMATION
  Report Type: 
  Country: None (occurrence: None)
  Receive Date: 20120206
  Receipt Date: 20120131
  Transmission Date: 20120608
  Serious: Yes (Hospitalization)
  Sender: FDA-Public Use
  Company Number: US-TEVA-320367USA

PATIENT
  Sex: Female

DRUGS (2)
  1. LEVOTHYROXINE SODIUM [Concomitant]
  2. CLINDAMYCIN [Suspect]
     Indication: TOOTH DISORDER
     Dates: start: 20111201

REACTIONS (5)
  - CONVULSION [None]
  - TREMOR [None]
  - NEUTROPENIA [None]
  - FATIGUE [None]
  - PAIN IN EXTREMITY [None]
